FAERS Safety Report 10515495 (Version 1)
Quarter: 2014Q4

REPORT INFORMATION
  Report Type: Spontaneous
  Country: US (occurrence: None)
  Receive Date: 20141009
  Receipt Date: 20141009
  Transmission Date: 20150528
  Serious: Yes (Hospitalization)
  Sender: FDA-Public Use
  Company Number: 2563645

PATIENT
  Age: 18 Year
  Sex: Female

DRUGS (1)
  1. DEFEROXAMINE MESILATE [Suspect]
     Active Substance: DEFEROXAMINE MESYLATE
     Indication: IRON OVERLOAD
     Dosage: DRIPS
     Route: 042

REACTIONS (3)
  - Nocardia sepsis [None]
  - Acute respiratory distress syndrome [None]
  - Septic shock [None]
